FAERS Safety Report 7704503-3 (Version None)
Quarter: 2011Q3

REPORT INFORMATION
  Report Type: 
  Country: None (occurrence: None)
  Receive Date: 20110823
  Receipt Date: 20110815
  Transmission Date: 20111222
  Serious: Yes (Hospitalization)
  Sender: FDA-Public Use
  Company Number: US-ELI_LILLY_AND_COMPANY-US200906005671

PATIENT
  Sex: Female
  Weight: 122.45 kg

DRUGS (6)
  1. BYETTA [Suspect]
     Dosage: UNK
     Dates: start: 20071003, end: 20071103
  2. ACTOS [Concomitant]
     Dosage: 30 MG, UNK
  3. METFORMIN HCL [Concomitant]
     Dosage: 500 MG, UNK
  4. BYETTA [Suspect]
     Dosage: UNK, UNK
     Dates: start: 20070503, end: 20070603
  5. LANTUS [Concomitant]
     Dosage: UNK, EACH EVENING
     Dates: start: 20070503, end: 20070603
  6. LANTUS [Concomitant]
     Dosage: UNK
     Dates: start: 20071003, end: 20071103

REACTIONS (3)
  - RENAL INJURY [None]
  - OFF LABEL USE [None]
  - PANCREATITIS ACUTE [None]
